FAERS Safety Report 12783556 (Version 1)
Quarter: 2016Q3

REPORT INFORMATION
  Report Type: Spontaneous
  Country: US (occurrence: US)
  Receive Date: 20160927
  Receipt Date: 20160927
  Transmission Date: 20161109
  Serious: Yes (Life-Threatening, Hospitalization)
  Sender: FDA-Public Use
  Company Number: None

PATIENT
  Age: 92 Year
  Sex: Female
  Weight: 58.5 kg

DRUGS (2)
  1. DESMOPRESSION ACETATE [Suspect]
     Active Substance: DESMOPRESSIN ACETATE
     Indication: INCONTINENCE
     Route: 048
     Dates: end: 20160920
  2. BP MEDS [Concomitant]

REACTIONS (1)
  - Blood sodium decreased [None]

NARRATIVE: CASE EVENT DATE: 20160920
